FAERS Safety Report 6779933-7 (Version None)
Quarter: 2010Q2

REPORT INFORMATION
  Report Type: 
  Country: None (occurrence: None)
  Receive Date: 20100618
  Receipt Date: 20100611
  Transmission Date: 20101027
  Serious: Yes (Hospitalization, Other)
  Sender: FDA-Public Use
  Company Number: US-RB-010535-10

PATIENT
  Age: 61 Year
  Sex: Female

DRUGS (3)
  1. SUBOXONE [Suspect]
     Route: 060
     Dates: start: 20100501, end: 20100604
  2. SUBOXONE [Suspect]
     Dosage: UNKNOWN DOSING DETAILS
     Route: 065
     Dates: start: 20100601
  3. XANAX [Suspect]
     Indication: ANXIETY DISORDER
     Dosage: DOSING INFORMATION UNKNOWN.
     Route: 065

REACTIONS (17)
  - BIPOLAR DISORDER [None]
  - DEPRESSION [None]
  - DISORIENTATION [None]
  - DIZZINESS [None]
  - DYSPNOEA [None]
  - ENURESIS [None]
  - FALL [None]
  - FATIGUE [None]
  - GAIT DISTURBANCE [None]
  - HALLUCINATION [None]
  - KIDNEY INFECTION [None]
  - MEMORY IMPAIRMENT [None]
  - MOOD SWINGS [None]
  - PANIC ATTACK [None]
  - SOMNOLENCE [None]
  - SYNCOPE [None]
  - TREMOR [None]
